FAERS Safety Report 6333212-0 (Version None)
Quarter: 2009Q3

REPORT INFORMATION
  Report Type: 
  Country: None (occurrence: None)
  Receive Date: 20090828
  Receipt Date: 20090826
  Transmission Date: 20100115
  Serious: Yes (Other)
  Sender: FDA-Public Use
  Company Number: AU-BRISTOL-MYERS SQUIBB COMPANY-14756597

PATIENT
  Age: 73 Year
  Sex: Female
  Weight: 58 kg

DRUGS (3)
  1. AVAPRO [Suspect]
     Indication: ESSENTIAL HYPERTENSION
  2. FELODUR [Suspect]
     Indication: ESSENTIAL HYPERTENSION
     Dosage: FELODUR ER
  3. SOMAC [Suspect]
     Indication: HAEMORRHAGE
     Route: 048
     Dates: start: 20080101

REACTIONS (1)
  - PANCREATITIS CHRONIC [None]
